FAERS Safety Report 13456819 (Version 2)
Quarter: 2017Q2

REPORT INFORMATION
  Report Type: Spontaneous
  Country: US (occurrence: US)
  Receive Date: 20170419
  Receipt Date: 20170530
  Transmission Date: 20170830
  Serious: Yes (Other)
  Sender: FDA-Public Use
  Company Number: US-JNJFOC-20170413478

PATIENT
  Sex: Female
  Weight: 62.6 kg

DRUGS (8)
  1. BOTOX [Concomitant]
     Active Substance: ONABOTULINUMTOXINA
     Indication: PRODUCT USED FOR UNKNOWN INDICATION
  2. TOPAMAX [Suspect]
     Active Substance: TOPIRAMATE
     Indication: MIGRAINE
     Route: 048
  3. TOPAMAX [Suspect]
     Active Substance: TOPIRAMATE
     Indication: MIGRAINE
     Route: 048
     Dates: start: 2005
  4. TOPAMAX [Suspect]
     Active Substance: TOPIRAMATE
     Indication: MIGRAINE
     Route: 048
     Dates: start: 2006
  5. TOPIRAMATE. [Suspect]
     Active Substance: TOPIRAMATE
     Indication: MIGRAINE
     Route: 048
  6. TOPAMAX [Suspect]
     Active Substance: TOPIRAMATE
     Indication: MIGRAINE
     Route: 048
  7. TOPAMAX [Suspect]
     Active Substance: TOPIRAMATE
     Indication: MIGRAINE
     Route: 048
  8. VERAPAMIL [Concomitant]
     Active Substance: VERAPAMIL HYDROCHLORIDE
     Indication: CARDIAC ASSISTANCE DEVICE USER
     Route: 065

REACTIONS (13)
  - Syncope [Unknown]
  - Multiple injuries [Unknown]
  - Sensory loss [Unknown]
  - Drug prescribing error [Unknown]
  - Exposure to toxic agent [Unknown]
  - Seizure [Unknown]
  - Adverse event [Unknown]
  - Abdominal discomfort [Unknown]
  - Treatment noncompliance [Unknown]
  - Brain injury [Unknown]
  - Loss of personal independence in daily activities [Unknown]
  - Migraine [Unknown]
  - Hypoacusis [Unknown]
